FAERS Safety Report 19771655 (Version 5)
Quarter: 2022Q4

REPORT INFORMATION
  Report Type: Spontaneous
  Country: US (occurrence: US)
  Receive Date: 20210901
  Receipt Date: 20221220
  Transmission Date: 20230112
  Serious: No
  Sender: FDA-Public Use
  Company Number: US-PFIZER INC-2021536134

PATIENT
  Age: 74 Year
  Sex: Female

DRUGS (1)
  1. IBRANCE [Suspect]
     Active Substance: PALBOCICLIB
     Indication: Breast cancer female
     Dosage: 100 MG

REACTIONS (5)
  - Pain [Unknown]
  - Asthenia [Unknown]
  - Thinking abnormal [Unknown]
  - Nausea [Unknown]
  - White blood cell count decreased [Unknown]
